FAERS Safety Report 24579079 (Version 1)
Quarter: 2024Q4

REPORT INFORMATION
  Report Type: Spontaneous
  Country: US (occurrence: US)
  Receive Date: 20241105
  Receipt Date: 20241105
  Transmission Date: 20250114
  Serious: No
  Sender: ROCHE
  Company Number: US-ROCHE-10000122354

PATIENT
  Sex: Female

DRUGS (16)
  1. XOLAIR PFS [Suspect]
     Active Substance: OMALIZUMAB
     Indication: Asthma
     Dosage: FORM STRENGTH  150 MG/ML
     Route: 058
     Dates: start: 20221022
  2. XOLAIR PFS [Suspect]
     Active Substance: OMALIZUMAB
  3. ALBUTEROL SULFATE [Concomitant]
     Active Substance: ALBUTEROL SULFATE
     Dosage: AER 108 ( 90 MOUNJARO SOP 7.5 MG/ 0.5 ML)
  4. AMITRIPTYLINE [Concomitant]
     Active Substance: AMITRIPTYLINE
  5. ASPIRIN [Concomitant]
     Active Substance: ASPIRIN
  6. ATORVASTATIN [Concomitant]
     Active Substance: ATORVASTATIN
  7. CLONAZEPAM [Concomitant]
     Active Substance: CLONAZEPAM
  8. GLIPIZIDE [Concomitant]
     Active Substance: GLIPIZIDE
  9. IBUPROFEN [Concomitant]
     Active Substance: IBUPROFEN
  10. LATUDA [Concomitant]
     Active Substance: LURASIDONE HYDROCHLORIDE
  11. LOSARTAN POTASSIUM [Concomitant]
     Active Substance: LOSARTAN POTASSIUM
     Dosage: 100 - 12.5
  12. METOPROLOL [Concomitant]
     Active Substance: METOPROLOL
  13. MONTELUKAST [Concomitant]
     Active Substance: MONTELUKAST
  14. OMEPRAZOLE [Concomitant]
     Active Substance: OMEPRAZOLE
  15. POTASSIUM CHLORIDE [Concomitant]
     Active Substance: POTASSIUM CHLORIDE
     Dosage: 10 MEQ
  16. TRELEGY ELLIPTA [Concomitant]
     Active Substance: FLUTICASONE FUROATE\UMECLIDINIUM BROMIDE\VILANTEROL TRIFENATATE
     Dosage: 200 - 62.5

REACTIONS (2)
  - Nasopharyngitis [Recovered/Resolved]
  - Illness [Recovered/Resolved]
